FAERS Safety Report 4461870-4 (Version None)
Quarter: 2004Q3

REPORT INFORMATION
  Report Type: 
  Country: None (occurrence: None)
  Receive Date: 20040929
  Receipt Date: 20031106
  Transmission Date: 20050211
  Serious: No
  Sender: FDA-Public Use
  Company Number: US-GLAXOSMITHKLINE-A0433307A

PATIENT
  Age: 72 Year
  Sex: Female
  Weight: 75.9 kg

DRUGS (1)
  1. SEREVENT [Suspect]
     Dosage: 2 PER DAY
     Route: 055
     Dates: start: 20011121, end: 20011101

REACTIONS (1)
  - CHOKING SENSATION [None]
